FAERS Safety Report 14432419 (Version 6)
Quarter: 2021Q1

REPORT INFORMATION
  Report Type: Spontaneous
  Country: US (occurrence: US)
  Receive Date: 20180124
  Receipt Date: 20210226
  Transmission Date: 20210419
  Serious: Yes (Hospitalization, Other)
  Sender: FDA-Public Use
  Company Number: US-PFIZER INC-2017555168

PATIENT
  Age: 53 Year
  Sex: Female
  Weight: 67 kg

DRUGS (1)
  1. LYRICA [Suspect]
     Active Substance: PREGABALIN
     Dosage: 300 MG, 2X/DAY
     Route: 048

REACTIONS (7)
  - Pain in extremity [Unknown]
  - Urinary tract infection [Recovered/Resolved]
  - Mental disorder [Unknown]
  - Pain [Unknown]
  - Asthenia [Unknown]
  - Drug dependence [Unknown]
  - Musculoskeletal stiffness [Unknown]
